FAERS Safety Report 4444369-0 (Version None)
Quarter: 2004Q3

REPORT INFORMATION
  Report Type: 
  Country: None (occurrence: None)
  Receive Date: 20040802
  Receipt Date: 20040622
  Transmission Date: 20050211
  Serious: No
  Sender: FDA-Public Use
  Company Number: 2003-109259-NL

PATIENT
  Age: 17 Year
  Sex: Female
  Weight: 87.1 kg

DRUGS (2)
  1. NUVARING [Suspect]
     Dosage: DF DAILY
     Dates: start: 20030310
  2. PRENATAL VITAMINS [Concomitant]

REACTIONS (1)
  - UNINTENDED PREGNANCY [None]
